FAERS Safety Report 23930696 (Version 2)
Quarter: 2024Q2

REPORT INFORMATION
  Report Type: Spontaneous
  Country: JP (occurrence: JP)
  Receive Date: 20240603
  Receipt Date: 20240626
  Transmission Date: 20240716
  Serious: Yes (Other)
  Sender: FDA-Public Use
  Company Number: JP-SAKK-2024SA159923AA

PATIENT
  Age: 30 Year
  Sex: Male

DRUGS (1)
  1. MABCAMPATH [Suspect]
     Active Substance: ALEMTUZUMAB
     Indication: Prophylaxis against graft versus host disease
     Route: 041

REACTIONS (7)
  - Thyrotoxic crisis [Unknown]
  - Pyrexia [Unknown]
  - Oropharyngeal pain [Unknown]
  - Somnolence [Unknown]
  - Tachycardia [Unknown]
  - Hepatic function abnormal [Unknown]
  - Depressed level of consciousness [Recovering/Resolving]
